FAERS Safety Report 5492336-0 (Version None)
Quarter: 2007Q4

REPORT INFORMATION
  Report Type: 
  Country: None (occurrence: None)
  Receive Date: 20071015
  Receipt Date: 20070723
  Transmission Date: 20080405
  Serious: No
  Sender: FDA-Public Use
  Company Number: 2007SP002606

PATIENT
  Age: 89 Year
  Sex: Male
  Weight: 64.4108 kg

DRUGS (5)
  1. LUNESTA [Suspect]
     Indication: INSOMNIA
     Dosage: 3 MG;PRN;ORAL
     Route: 048
     Dates: start: 20070701
  2. TAMSULOSIN HCL [Concomitant]
  3. COREG [Concomitant]
  4. SIMVASTATIN [Concomitant]
  5. ZOLPIDEM TARTRATE [Concomitant]

REACTIONS (2)
  - MIDDLE INSOMNIA [None]
  - POLLAKIURIA [None]
